FAERS Safety Report 6740712-8 (Version None)
Quarter: 2010Q2

REPORT INFORMATION
  Report Type: 
  Country: None (occurrence: None)
  Receive Date: 20100521
  Receipt Date: 20100505
  Transmission Date: 20101027
  Serious: Yes (Disabling)
  Sender: FDA-Public Use
  Company Number: 2010RR-33724

PATIENT
  Age: 70 Year
  Sex: Male

DRUGS (8)
  1. ASPIRIN [Suspect]
  2. CIPROFLOXACIN [Suspect]
     Dosage: 750 MG, BID
  3. CLOPIDOGREL [Suspect]
  4. ERYTHROMYCIN [Suspect]
     Indication: CELLULITIS
     Dosage: 250 MG;QID ORAL
     Route: 048
  5. METRONIDAZOLE [Suspect]
     Dosage: 400 MG,TID, ORAL
     Route: 048
  6. MEROPENEM [Concomitant]
  7. TEICOPLANIN [Concomitant]
  8. WARFARIN SODIUM [Concomitant]

REACTIONS (10)
  - CELLULITIS [None]
  - CHALAZION [None]
  - DECREASED APPETITE [None]
  - DRUG INTERACTION [None]
  - EYE PAIN [None]
  - HEADACHE [None]
  - HYPHAEMA [None]
  - INTERNATIONAL NORMALISED RATIO INCREASED [None]
  - NAUSEA [None]
  - PYREXIA [None]
